FAERS Safety Report 13649817 (Version 1)
Quarter: 2017Q2

REPORT INFORMATION
  Report Type: Spontaneous
  Country: US (occurrence: US)
  Receive Date: 20170613
  Receipt Date: 20170613
  Transmission Date: 20170830
  Serious: Yes (Hospitalization)
  Sender: FDA-Public Use
  Company Number: None

PATIENT
  Age: 65 Year
  Sex: Female
  Weight: 70.2 kg

DRUGS (5)
  1. PRO BIOTICS [Concomitant]
  2. BARIUM SULPHA [Suspect]
     Active Substance: BARIUM SULFATE
     Indication: IMAGING PROCEDURE
     Route: 048
     Dates: start: 20170612
  3. CRESTOR [Concomitant]
     Active Substance: ROSUVASTATIN CALCIUM
  4. PREVACID [Concomitant]
     Active Substance: LANSOPRAZOLE
  5. CRANBERRY. [Concomitant]
     Active Substance: CRANBERRY

REACTIONS (10)
  - Dizziness [None]
  - Asthenia [None]
  - Muscle spasms [None]
  - Confusional state [None]
  - Pallor [None]
  - Hyperhidrosis [None]
  - Blood sodium decreased [None]
  - Contrast media reaction [None]
  - Diarrhoea [None]
  - Nausea [None]

NARRATIVE: CASE EVENT DATE: 20170612
